FAERS Safety Report 8171832-1 (Version None)
Quarter: 2012Q1

REPORT INFORMATION
  Report Type: 
  Country: None (occurrence: None)
  Receive Date: 20120228
  Receipt Date: 20120220
  Transmission Date: 20120608
  Serious: Yes (Hospitalization)
  Sender: FDA-Public Use
  Company Number: ES-BAYER-2012-017694

PATIENT
  Age: 63 Year
  Sex: Female

DRUGS (1)
  1. GADAVIST [Suspect]
     Dosage: 10 ML, UNK
     Route: 042
     Dates: start: 20120217, end: 20120217

REACTIONS (1)
  - LARYNGEAL OEDEMA [None]
